FAERS Safety Report 13771140 (Version 1)
Quarter: 2017Q3

REPORT INFORMATION
  Report Type: Spontaneous
  Country: US (occurrence: US)
  Receive Date: 20170720
  Receipt Date: 20170720
  Transmission Date: 20171127
  Serious: Yes (Life-Threatening)
  Sender: FDA-Public Use
  Company Number: None

PATIENT
  Age: 51 Year
  Sex: Male
  Weight: 99 kg

DRUGS (9)
  1. TRILIPIX [Concomitant]
     Active Substance: FENOFIBRIC ACID
  2. VITAMIN D [Concomitant]
     Active Substance: CHOLECALCIFEROL
  3. VITAMIN C [Concomitant]
     Active Substance: ASCORBIC ACID
  4. VITAMIN B12 [Concomitant]
     Active Substance: CYANOCOBALAMIN
  5. MILK THISTLE [Concomitant]
     Active Substance: MILK THISTLE
  6. GARCINIA CAMBOGIA [Concomitant]
     Active Substance: HYDROXYCITRIC ACID
  7. DEXILANT [Suspect]
     Active Substance: DEXLANSOPRAZOLE
     Indication: GASTROOESOPHAGEAL REFLUX DISEASE
     Dosage: ?          OTHER STRENGTH:MG;QUANTITY:1 CAPSULE(S);?
     Route: 048
     Dates: start: 20080701, end: 20170717
  8. PEPCID [Concomitant]
     Active Substance: FAMOTIDINE
  9. MULTI VITAMIN [Concomitant]
     Active Substance: VITAMINS

REACTIONS (8)
  - Extrasystoles [None]
  - Myalgia [None]
  - Dizziness [None]
  - Headache [None]
  - Cough [None]
  - Heart rate irregular [None]
  - Diverticulitis [None]
  - Arthralgia [None]

NARRATIVE: CASE EVENT DATE: 20100701
